FAERS Safety Report 7278656-8 (Version None)
Quarter: 2011Q1

REPORT INFORMATION
  Report Type: 
  Country: None (occurrence: None)
  Receive Date: 20110207
  Receipt Date: 20110201
  Transmission Date: 20110831
  Serious: No
  Sender: FDA-Public Use
  Company Number: US-PFIZER INC-2011023235

PATIENT
  Sex: Female

DRUGS (1)
  1. PRISTIQ [Suspect]
     Dosage: UNK

REACTIONS (6)
  - INSOMNIA [None]
  - SEXUAL DYSFUNCTION [None]
  - AGITATION [None]
  - HEADACHE [None]
  - IRRITABILITY [None]
  - AMNESIA [None]
